FAERS Safety Report 4632323-5 (Version None)
Quarter: 2005Q2

REPORT INFORMATION
  Report Type: 
  Country: None (occurrence: None)
  Receive Date: 20050411
  Receipt Date: 20050401
  Transmission Date: 20051028
  Serious: Yes (Life-Threatening)
  Sender: FDA-Public Use
  Company Number: FR-MERCK-0504FRA00001

PATIENT
  Age: 45 Year
  Sex: Male

DRUGS (5)
  1. CRIXIVAN [Suspect]
     Indication: HIV INFECTION
     Route: 048
  2. RITONAVIR [Suspect]
     Indication: HIV INFECTION
     Route: 048
  3. STAVUDINE [Suspect]
     Indication: HIV INFECTION
     Route: 048
     Dates: end: 20040706
  4. VALPROATE SODIUM [Concomitant]
     Route: 048
  5. LAMIVUDINE [Suspect]
     Indication: HIV INFECTION
     Route: 048
     Dates: end: 20040706

REACTIONS (2)
  - BLOOD LACTIC ACID INCREASED [None]
  - NEUROPATHY PERIPHERAL [None]
